FAERS Safety Report 5609123-2 (Version None)
Quarter: 2008Q1

REPORT INFORMATION
  Report Type: 
  Country: None (occurrence: None)
  Receive Date: 20080131
  Receipt Date: 20080117
  Transmission Date: 20080703
  Serious: Yes (Other)
  Sender: FDA-Public Use
  Company Number: DK-ASTRAZENECA-2008SE00374

PATIENT
  Age: 33 Year
  Sex: Male

DRUGS (5)
  1. SPIROCORT [Suspect]
     Route: 055
     Dates: start: 20080101
  2. SERETIDE [Suspect]
     Indication: ASTHMA
     Dosage: 250 MCG FLUTICASONE + SALMETEROL
     Route: 055
  3. SERETIDE [Suspect]
     Dosage: 250 MCG FLUTICASONE + SALMETEROL 2 INHALATIONS BID
     Route: 055
     Dates: start: 20070601, end: 20080101
  4. NEXIUM [Concomitant]
     Indication: GASTRIC PH DECREASED
  5. SELO-ZOK [Concomitant]
     Indication: ATRIAL FLUTTER
     Dates: start: 20070701

REACTIONS (1)
  - PALPITATIONS [None]
